FAERS Safety Report 8871321 (Version 2)
Quarter: 2015Q1

REPORT INFORMATION
  Report Type: Report from Study
  Country: US (occurrence: US)
  Receive Date: 20121023
  Receipt Date: 20150128
  Transmission Date: 20150721
  Serious: Yes (Death, Other)
  Sender: FDA-Public Use
  Company Number: US-ROCHE-1130806

PATIENT
  Sex: Female

DRUGS (15)
  1. TAXOL [Concomitant]
     Active Substance: PACLITAXEL
  2. HERCEPTIN [Suspect]
     Active Substance: TRASTUZUMAB
     Indication: BREAST CANCER FEMALE
     Dosage: LOADING DOSE
     Route: 042
     Dates: start: 19991021
  3. POTASSIUM HYDROCHLORIDE [Concomitant]
     Active Substance: POTASSIUM CHLORIDE
     Route: 042
  4. TYLENOL [Concomitant]
     Active Substance: ACETAMINOPHEN
  5. ADRIAMYCIN [Concomitant]
     Active Substance: DOXORUBICIN HYDROCHLORIDE
  6. PROCRIT [Concomitant]
     Active Substance: ERYTHROPOIETIN
     Route: 058
  7. PROTINEX [Concomitant]
  8. DECADRON [Concomitant]
     Active Substance: DEXAMETHASONE
     Route: 042
     Dates: start: 19991021
  9. ANZEMET [Concomitant]
     Active Substance: DOLASETRON MESYLATE
     Route: 042
     Dates: start: 19991021
  10. CIPRO [Concomitant]
     Active Substance: CIPROFLOXACIN HYDROCHLORIDE
     Route: 065
     Dates: start: 20000427
  11. HEPARIN [Concomitant]
     Active Substance: HEPARIN SODIUM
     Route: 065
  12. CYTOXAN [Concomitant]
     Active Substance: CYCLOPHOSPHAMIDE
  13. HERCEPTIN [Suspect]
     Active Substance: TRASTUZUMAB
     Indication: METASTASES TO CENTRAL NERVOUS SYSTEM
     Dosage: MAINTANENCE DOSE
     Route: 042
  14. TAXOTERE [Concomitant]
     Active Substance: DOCETAXEL
     Route: 065
     Dates: start: 19991022
  15. AROMASIN [Concomitant]
     Active Substance: EXEMESTANE

REACTIONS (29)
  - Death [Fatal]
  - Spinal cord compression [Unknown]
  - Decreased appetite [Unknown]
  - Lethargy [Unknown]
  - Dyspnoea [Unknown]
  - Fatigue [Unknown]
  - Constipation [Unknown]
  - Pleural effusion [Unknown]
  - Urinary retention [Recovering/Resolving]
  - Neurological decompensation [Unknown]
  - Peripheral coldness [Unknown]
  - Atonic urinary bladder [Unknown]
  - Vomiting [Unknown]
  - Deep vein thrombosis [Unknown]
  - Urinary tract infection [Unknown]
  - Weight decreased [Unknown]
  - Slow speech [Unknown]
  - Metastases to central nervous system [Unknown]
  - Pain [Unknown]
  - Cough [Recovering/Resolving]
  - Skin abrasion [Unknown]
  - Mental impairment [Unknown]
  - Hypoaesthesia [Unknown]
  - Paraesthesia [Unknown]
  - Nausea [Unknown]
  - Disease progression [Unknown]
  - Dizziness [Unknown]
  - Asthenia [Unknown]
  - Dehydration [Unknown]
